FAERS Safety Report 5594187-5 (Version None)
Quarter: 2008Q1

REPORT INFORMATION
  Report Type: 
  Country: None (occurrence: None)
  Receive Date: 20080115
  Receipt Date: 20080103
  Transmission Date: 20080703
  Serious: Yes (Hospitalization, Other)
  Sender: FDA-Public Use
  Company Number: CHPA2008US00454

PATIENT
  Sex: Female

DRUGS (1)
  1. NICOTINE [Suspect]
     Dosage: 21 MG, TRANSDERMAL
     Route: 062

REACTIONS (4)
  - BOREDOM [None]
  - CHRONIC OBSTRUCTIVE PULMONARY DISEASE [None]
  - FRUSTRATION [None]
  - STRESS [None]
